FAERS Safety Report 7371767-8 (Version None)
Quarter: 2011Q1

REPORT INFORMATION
  Report Type: 
  Country: None (occurrence: None)
  Receive Date: 20110324
  Receipt Date: 20110310
  Transmission Date: 20110831
  Serious: Yes (Disabling)
  Sender: FDA-Public Use
  Company Number: PHHY2011AT05213

PATIENT
  Age: 49 Year
  Sex: Female

DRUGS (3)
  1. TRILEPTAL [Suspect]
     Dosage: 300 MG, DAILY, 2 DOSAGES PER DAY, 1-0-1
     Dates: start: 20080201
  2. TRITTICO [Suspect]
     Indication: BIPOLAR DISORDER
     Dosage: 150 MG, UNK
  3. OMEPRAZOLE [Suspect]

REACTIONS (3)
  - TOOTH DISORDER [None]
  - TOOTH FRACTURE [None]
  - ENAMEL ANOMALY [None]
